FAERS Safety Report 6337160-1 (Version None)
Quarter: 2009Q3

REPORT INFORMATION
  Report Type: 
  Country: None (occurrence: None)
  Receive Date: 20090831
  Receipt Date: 20090820
  Transmission Date: 20100115
  Serious: Yes (Death)
  Sender: FDA-Public Use
  Company Number: 001588

PATIENT

DRUGS (3)
  1. ALPRAZOLAM [Suspect]
  2. METHADONE HCL [Suspect]
     Indication: PAIN
  3. MORPHINE [Suspect]
     Indication: PAIN
     Dosage: SEE IMAGE
     Route: 058

REACTIONS (2)
  - DRUG INTERACTION [None]
  - RESPIRATORY DEPRESSION [None]
